FAERS Safety Report 19763850 (Version 3)
Quarter: 2021Q4

REPORT INFORMATION
  Report Type: Spontaneous
  Country: US (occurrence: None)
  Receive Date: 20210830
  Receipt Date: 20211102
  Transmission Date: 20220303
  Serious: Yes (Other)
  Sender: FDA-Public Use
  Company Number: US-ROCHE-2825302

PATIENT
  Age: 76 Year
  Sex: Male

DRUGS (3)
  1. ERIVEDGE [Suspect]
     Active Substance: VISMODEGIB
     Indication: Basal cell carcinoma
     Dosage: STOPPED VISMODEGIB FROM 09/JUN/2021 TO 29.JUL/2021
     Route: 048
     Dates: start: 202102
  2. MAGNESIUM [Concomitant]
     Active Substance: MAGNESIUM
  3. KETOCONAZOLE [Concomitant]
     Active Substance: KETOCONAZOLE
     Indication: Scab

REACTIONS (6)
  - Muscle spasms [Unknown]
  - Pain [Unknown]
  - Dysgeusia [Unknown]
  - Hypogeusia [Unknown]
  - Alopecia [Unknown]
  - Malignant melanoma [Unknown]

NARRATIVE: CASE EVENT DATE: 20210316
